FAERS Safety Report 8800921 (Version 1)
Quarter: 2012Q4

REPORT INFORMATION
  Report Type: 
  Country: US (occurrence: US)
  Receive Date: 20120920
  Receipt Date: 20120920
  Transmission Date: 20130627
  Serious: No
  Sender: FDA-Public Use
  Company Number: US-ROCHE-1120091

PATIENT
  Age: 84 Year
  Sex: Female

DRUGS (6)
  1. AVASTIN [Suspect]
     Indication: COLORECTAL CANCER METASTATIC
     Route: 042
  2. ELOXATIN [Suspect]
     Indication: COLORECTAL CANCER METASTATIC
  3. FLUOROURACIL [Suspect]
     Indication: COLORECTAL CANCER METASTATIC
  4. FOLINIC ACID [Suspect]
     Indication: COLORECTAL CANCER METASTATIC
  5. CAMPTOSAR [Suspect]
     Indication: COLORECTAL CANCER METASTATIC
  6. IRON SUPPLEMENT [Concomitant]
     Indication: ANAEMIA

REACTIONS (5)
  - Eye haemorrhage [Not Recovered/Not Resolved]
  - Anaemia [Not Recovered/Not Resolved]
  - Hypertension [Not Recovered/Not Resolved]
  - Weight decreased [Not Recovered/Not Resolved]
  - Platelet count decreased [Unknown]
